FAERS Safety Report 8325690-2 (Version None)
Quarter: 2012Q2

REPORT INFORMATION
  Report Type: 
  Country: None (occurrence: None)
  Receive Date: 20120501
  Receipt Date: 20120501
  Transmission Date: 20120825
  Serious: Yes (Hospitalization)
  Sender: FDA-Public Use
  Company Number: None

PATIENT
  Age: 62 Year
  Sex: Female
  Weight: 88.45 kg

DRUGS (1)
  1. LESCOL [Suspect]
     Indication: BLOOD CHOLESTEROL INCREASED
     Dosage: 80MG
     Route: 048
     Dates: start: 20110211, end: 20120118

REACTIONS (3)
  - MUSCLE RUPTURE [None]
  - TENDON RUPTURE [None]
  - JOINT DISLOCATION [None]
